FAERS Safety Report 14032832 (Version 1)
Quarter: 2017Q4

REPORT INFORMATION
  Report Type: Spontaneous
  Country: US (occurrence: US)
  Receive Date: 20171003
  Receipt Date: 20171003
  Transmission Date: 20180321
  Serious: Yes (Other)
  Sender: FDA-Public Use
  Company Number: US-ROCHE-2000068

PATIENT
  Sex: Female

DRUGS (1)
  1. ACTEMRA [Suspect]
     Active Substance: TOCILIZUMAB
     Indication: RHEUMATOID ARTHRITIS
     Route: 065

REACTIONS (9)
  - Therapeutic product ineffective [Unknown]
  - Nasal congestion [Unknown]
  - Weight increased [Unknown]
  - Malaise [Unknown]
  - Constipation [Unknown]
  - Joint injury [Unknown]
  - Fatigue [Unknown]
  - Fractured coccyx [Unknown]
  - Fall [Unknown]
